FAERS Safety Report 8345299-4 (Version None)
Quarter: 2012Q2

REPORT INFORMATION
  Report Type: 
  Country: None (occurrence: None)
  Receive Date: 20120508
  Receipt Date: 20120427
  Transmission Date: 20120825
  Serious: Yes (Hospitalization, Other)
  Sender: FDA-Public Use
  Company Number: DE-JNJFOC-20120414288

PATIENT
  Sex: Male
  Weight: 80 kg

DRUGS (2)
  1. REMICADE [Suspect]
     Indication: COLITIS ULCERATIVE
     Route: 042
     Dates: start: 20110527
  2. MESALAMINE [Concomitant]
     Dosage: ROUTE IS ILLEGIBLE

REACTIONS (1)
  - BLADDER TRANSITIONAL CELL CARCINOMA [None]
